FAERS Safety Report 21193929 (Version 1)
Quarter: 2022Q3

REPORT INFORMATION
  Report Type: Spontaneous
  Country: US (occurrence: US)
  Receive Date: 20220810
  Receipt Date: 20220810
  Transmission Date: 20221026
  Serious: Yes (Hospitalization, Other)
  Sender: FDA-Public Use
  Company Number: US-BRISTOL-MYERS SQUIBB COMPANY-2022-086578

PATIENT
  Age: 65 Year
  Sex: Female
  Weight: 97.06 kg

DRUGS (1)
  1. REVLIMID [Suspect]
     Active Substance: LENALIDOMIDE
     Indication: Plasma cell myeloma
     Dosage: 1 CAPSULE DAY 1-21, THEN OFF 7 DAYS. ?REPEAT.
     Route: 048
     Dates: start: 20200916

REACTIONS (1)
  - Pneumonia [Unknown]
